FAERS Safety Report 6601870-9 (Version None)
Quarter: 2010Q1

REPORT INFORMATION
  Report Type: 
  Country: None (occurrence: None)
  Receive Date: 20100225
  Receipt Date: 20100215
  Transmission Date: 20100710
  Serious: Yes (Death)
  Sender: FDA-Public Use
  Company Number: JP-ABBOTT-09P-087-0590797-00

PATIENT
  Age: 83 Year
  Sex: Male
  Weight: 60.65 kg

DRUGS (10)
  1. LEUPLIN SR FOR INJECTION 11.25 MG [Suspect]
     Indication: PROSTATE CANCER STAGE IV
     Route: 058
     Dates: start: 20061212, end: 20080311
  2. LEUPLIN SR FOR INJECTION 11.25 MG [Suspect]
     Route: 058
     Dates: start: 20080709, end: 20081001
  3. BICALUTAMIDE [Concomitant]
     Indication: PROSTATE CANCER STAGE IV
     Route: 048
     Dates: start: 20060912, end: 20070608
  4. ESTRAMUSTINE PHOSPHATE SODIUM [Concomitant]
     Indication: PROSTATE CANCER STAGE IV
     Route: 048
     Dates: start: 20070911, end: 20080708
  5. DEXAMETHASONE [Concomitant]
     Indication: PROSTATE CANCER STAGE IV
     Route: 048
     Dates: start: 20071104, end: 20081125
  6. TAXOTERE [Concomitant]
     Indication: PROSTATE CANCER STAGE IV
     Route: 042
     Dates: start: 20070719, end: 20070814
  7. TAXOTERE [Concomitant]
     Route: 042
     Dates: start: 20080604, end: 20080703
  8. PROSEXOL [Concomitant]
     Indication: PROSTATE CANCER STAGE IV
     Route: 048
     Dates: start: 20080709, end: 20081125
  9. DOCETAXEL HYDRATE [Concomitant]
     Indication: DRUG USE FOR UNKNOWN INDICATION
  10. RADIOTHERAPY [Concomitant]
     Indication: DRUG USE FOR UNKNOWN INDICATION

REACTIONS (2)
  - HAEMOGLOBIN DECREASED [None]
  - PROSTATE CANCER STAGE IV [None]
